FAERS Safety Report 22171272 (Version 1)
Quarter: 2023Q2

REPORT INFORMATION
  Report Type: Spontaneous
  Country: CN (occurrence: CN)
  Receive Date: 20230404
  Receipt Date: 20230404
  Transmission Date: 20230721
  Serious: Yes (Other)
  Sender: FDA-Public Use
  Company Number: None

PATIENT
  Age: 27 Year
  Sex: Male
  Weight: 50 kg

DRUGS (6)
  1. IFOSFAMIDE [Suspect]
     Active Substance: IFOSFAMIDE
     Indication: Lymphoma
     Dosage: 1.1 G, QD DILUTED WITH 0.9% NS 500 ML, ROUTE: INTRA PUMP INJECTION
     Route: 050
     Dates: start: 20230311, end: 20230311
  2. SODIUM CHLORIDE [Suspect]
     Active Substance: SODIUM CHLORIDE
     Indication: Medication dilution
     Dosage: 0.9%, 500ML, QD USED TO DILUTE 1.1 G IFOSFAMIDE, ROUTE: INTRA-PUMP INJECTION
     Route: 050
     Dates: start: 20230311, end: 20230311
  3. SODIUM CHLORIDE [Suspect]
     Active Substance: SODIUM CHLORIDE
     Dosage: 0.9%, 100ML, QD USED TO DILUTE 0.1 G ETOPOSIDE, ROUTE: INTRA-PUMP INJECTION
     Route: 050
     Dates: start: 20230311, end: 20230313
  4. SODIUM CHLORIDE [Suspect]
     Active Substance: SODIUM CHLORIDE
     Dosage: 0.9%, 100ML, QD USED TO DILUTE 600 MG RITUXIMAB ROUTE: INTRA-PUMP INJECTION
     Route: 050
     Dates: start: 20230310, end: 20230310
  5. ETOPOSIDE [Suspect]
     Active Substance: ETOPOSIDE
     Indication: Lymphoma
     Dosage: 0.1 G, QD DILUTED WITH  0.9% NS 100 ML, ROUTE: INTRA PUMP INJECTION
     Route: 050
     Dates: start: 20230311, end: 20230313
  6. RITUXIMAB [Suspect]
     Active Substance: RITUXIMAB
     Indication: Lymphoma
     Dosage: 600 MG, QD DILUTED WITH 0.9% NS 100ML, ROUTE: INTRA PUMP INJECTION
     Route: 050
     Dates: start: 20230310, end: 20230310

REACTIONS (1)
  - Platelet count decreased [Recovering/Resolving]

NARRATIVE: CASE EVENT DATE: 20230314
